FAERS Safety Report 16387398 (Version 2)
Quarter: 2019Q3

REPORT INFORMATION
  Report Type: Spontaneous
  Country: RU (occurrence: RU)
  Receive Date: 20190604
  Receipt Date: 20190826
  Transmission Date: 20191004
  Serious: Yes (Hospitalization)
  Sender: FDA-Public Use
  Company Number: RU-BAYER-2019-106073

PATIENT
  Sex: Female

DRUGS (2)
  1. ULTRAVIST [Suspect]
     Active Substance: IOPROMIDE
     Indication: ANGIOGRAM
     Dosage: UNK UNK, ONCE
  2. ULTRAVIST [Suspect]
     Active Substance: IOPROMIDE
     Indication: THERAPEUTIC EMBOLISATION

REACTIONS (4)
  - Suspected product quality issue [None]
  - Nervous system disorder [Recovered/Resolved]
  - Ischaemic stroke [Recovered/Resolved]
  - Contrast encephalopathy [Recovered/Resolved]
